FAERS Safety Report 7636727-8 (Version None)
Quarter: 2011Q3

REPORT INFORMATION
  Report Type: 
  Country: None (occurrence: None)
  Receive Date: 20110719
  Receipt Date: 20110705
  Transmission Date: 20111222
  Serious: Yes (Other)
  Sender: FDA-Public Use
  Company Number: 2011MA008378

PATIENT
  Age: 82 Year
  Sex: Female

DRUGS (3)
  1. HYDROCHLOROTHIAZIDE [Suspect]
     Indication: HYPERTENSION
     Dosage: 12.5 MG, QD, PO
     Route: 048
     Dates: start: 20100101, end: 20110101
  2. LORAZEPAM [Suspect]
     Indication: ANXIETY
     Dosage: 12.5 MG, QD, PO
     Route: 048
     Dates: start: 20110312
  3. CHLORDIAZEPOXIDE [Concomitant]

REACTIONS (2)
  - VISION BLURRED [None]
  - MALAISE [None]
